FAERS Safety Report 5813623-X (Version None)
Quarter: 2008Q3

REPORT INFORMATION
  Report Type: 
  Country: None (occurrence: None)
  Receive Date: 20080714
  Receipt Date: 20080630
  Transmission Date: 20090109
  Serious: No
  Sender: FDA-Public Use
  Company Number: 2008BI001467

PATIENT
  Sex: Female
  Weight: 43.5453 kg

DRUGS (1)
  1. AVONEX [Suspect]
     Indication: MULTIPLE SCLEROSIS
     Dosage: 30 UG; QW; IM
     Route: 030
     Dates: start: 20070201, end: 20071001

REACTIONS (5)
  - BACK PAIN [None]
  - DYSURIA [None]
  - GASTROINTESTINAL DISORDER [None]
  - HYPERHIDROSIS [None]
  - HYPOAESTHESIA [None]
